FAERS Safety Report 6023826-X (Version None)
Quarter: 2008Q4

REPORT INFORMATION
  Report Type: 
  Country: None (occurrence: None)
  Receive Date: 20081230
  Receipt Date: 20081215
  Transmission Date: 20090506
  Serious: Yes (Death)
  Sender: FDA-Public Use
  Company Number: US-PFIZER INC-2008153630

PATIENT
  Age: 48 Year
  Sex: Female

DRUGS (10)
  1. QUINAPRIL HCL [Suspect]
     Route: 048
  2. BUPROPION [Suspect]
     Route: 048
  3. VENLAFAXINE [Suspect]
     Route: 048
  4. ACETAMINOPHEN AND HYDROCODONE BITARTRATE [Suspect]
     Route: 048
  5. TRAMADOL [Suspect]
     Route: 048
  6. COCAINE [Suspect]
     Route: 048
  7. IRBESARTAN [Suspect]
     Route: 048
  8. HYDROCHLOROTHIAZIDE [Suspect]
     Route: 048
  9. ATROPINE SULFATE, DIPHENOXYLATE HCL [Suspect]
     Route: 048
  10. OLANZAPINE [Suspect]
     Route: 048

REACTIONS (3)
  - CARDIAC ARREST [None]
  - COMPLETED SUICIDE [None]
  - RESPIRATORY ARREST [None]
